FAERS Safety Report 12162581 (Version 3)
Quarter: 2016Q3

REPORT INFORMATION
  Report Type: Spontaneous
  Country: JP (occurrence: JP)
  Receive Date: 20160309
  Receipt Date: 20160705
  Transmission Date: 20161109
  Serious: Yes (Hospitalization)
  Sender: FDA-Public Use
  Company Number: JP-ASTELLAS-2016JP003549

PATIENT
  Age: 73 Year
  Sex: Male
  Weight: 55 kg

DRUGS (11)
  1. EQUA [Concomitant]
     Active Substance: VILDAGLIPTIN
     Indication: DIABETES MELLITUS
     Route: 048
     Dates: end: 20160222
  2. FEBURIC [Concomitant]
     Active Substance: FEBUXOSTAT
     Indication: HYPERURICAEMIA
     Route: 048
     Dates: end: 20160222
  3. GRACEPTOR [Suspect]
     Active Substance: TACROLIMUS
     Indication: IMMUNOSUPPRESSION
  4. JUSO [Concomitant]
     Active Substance: SODIUM BICARBONATE
     Indication: RENAL FAILURE
     Route: 048
     Dates: end: 20160222
  5. CALCIUM CARBONATE. [Concomitant]
     Active Substance: CALCIUM CARBONATE
     Indication: RENAL FAILURE
     Route: 048
     Dates: end: 20160222
  6. GRACEPTOR [Suspect]
     Active Substance: TACROLIMUS
     Indication: RENAL TRANSPLANT
     Route: 048
     Dates: start: 20160219, end: 20160224
  7. CELLCEPT [Concomitant]
     Active Substance: MYCOPHENOLATE MOFETIL\MYCOPHENOLATE MOFETIL HYDROCHLORIDE
     Indication: IMMUNOSUPPRESSION
     Route: 048
     Dates: start: 20160219
  8. ARGAMATE [Concomitant]
     Active Substance: CALCIUM POLYSTYRENE SULFONATE
     Indication: RENAL FAILURE
     Route: 048
     Dates: end: 20160222
  9. CILNIDIPINE [Concomitant]
     Active Substance: CILNIDIPINE
     Indication: HYPERTENSION
     Route: 048
     Dates: end: 20160222
  10. REBAMIPIDE [Concomitant]
     Active Substance: REBAMIPIDE
     Indication: GASTRITIS
     Route: 048
     Dates: end: 20160222
  11. VOGLIBOSE [Concomitant]
     Active Substance: VOGLIBOSE
     Indication: DIABETES MELLITUS
     Dosage: 0.3 MG, THRICE DAILY
     Route: 048
     Dates: end: 20160222

REACTIONS (8)
  - Blood lactate dehydrogenase increased [Recovering/Resolving]
  - Hypoaesthesia [Unknown]
  - Renal disorder [Recovering/Resolving]
  - Platelet count decreased [Recovering/Resolving]
  - Cold sweat [Unknown]
  - Malaise [Unknown]
  - Intentional product misuse [Unknown]
  - Blood creatine phosphokinase increased [Recovered/Resolved]

NARRATIVE: CASE EVENT DATE: 20160219
